FAERS Safety Report 16883293 (Version 2)
Quarter: 2019Q4

REPORT INFORMATION
  Report Type: Spontaneous
  Country: DE (occurrence: DE)
  Receive Date: 20191004
  Receipt Date: 20191031
  Transmission Date: 20200122
  Serious: Yes (Death, Other)
  Sender: FDA-Public Use
  Company Number: DE-GILEAD-2019-0431538

PATIENT
  Age: 44 Year
  Sex: Male
  Weight: 90 kg

DRUGS (17)
  1. METFORMIN [Concomitant]
     Active Substance: METFORMIN HYDROCHLORIDE
  2. ZIPRASIDON [Concomitant]
     Active Substance: ZIPRASIDONE HYDROCHLORIDE
  3. AMISULPRIDE [Concomitant]
     Active Substance: AMISULPRIDE
  4. EPCLUSA [Suspect]
     Active Substance: SOFOSBUVIR\VELPATASVIR
     Indication: PRODUCT USED FOR UNKNOWN INDICATION
     Dosage: UNK
     Route: 065
     Dates: start: 201909
  5. METOPROLOL. [Concomitant]
     Active Substance: METOPROLOL
  6. INSULIN [Concomitant]
     Active Substance: INSULIN NOS
  7. BUPRENORPHINE. [Concomitant]
     Active Substance: BUPRENORPHINE
  8. SOLIAN [Concomitant]
     Active Substance: AMISULPRIDE
  9. DELIX [RAMIPRIL] [Concomitant]
     Active Substance: RAMIPRIL
  10. JARDIANCE [Concomitant]
     Active Substance: EMPAGLIFLOZIN
  11. EMPAGLIFLOZIN [Concomitant]
     Active Substance: EMPAGLIFLOZIN
  12. ARIPIPRAZOL [Concomitant]
     Active Substance: ARIPIPRAZOLE
  13. HUMALOG [Concomitant]
     Active Substance: INSULIN LISPRO
  14. LERCANIDIPINE [Concomitant]
     Active Substance: LERCANIDIPINE
  15. MAGNESIOCARD [Concomitant]
     Active Substance: MAGNESIUM ASPARTATE HYDROCHLORIDE
  16. QUETIAPIN [Concomitant]
     Active Substance: QUETIAPINE
  17. SUBUTEX [Concomitant]
     Active Substance: BUPRENORPHINE HYDROCHLORIDE

REACTIONS (1)
  - Sudden death [Fatal]

NARRATIVE: CASE EVENT DATE: 20190921
